FAERS Safety Report 23233574 (Version 3)
Quarter: 2024Q1

REPORT INFORMATION
  Report Type: Report from Study
  Country: MX (occurrence: MX)
  Receive Date: 20231128
  Receipt Date: 20240306
  Transmission Date: 20240410
  Serious: No
  Sender: FDA-Public Use
  Company Number: MX-002147023-NVSC2023MX123053

PATIENT
  Age: 74 Year
  Sex: Female

DRUGS (3)
  1. ERENUMAB [Suspect]
     Active Substance: ERENUMAB
     Indication: Status migrainosus
     Dosage: 1 DOSAGE FORM, QMO
     Route: 058
  2. ERENUMAB [Suspect]
     Active Substance: ERENUMAB
     Indication: Migraine with aura
     Dosage: 70 MILLIGRAM
     Route: 065
  3. ERENUMAB [Suspect]
     Active Substance: ERENUMAB
     Indication: Infarction

REACTIONS (2)
  - Migraine [Not Recovered/Not Resolved]
  - Therapeutic product effect incomplete [Unknown]
